FAERS Safety Report 9936774 (Version 1)
Quarter: 2014Q1

REPORT INFORMATION
  Report Type: Spontaneous
  Country: US (occurrence: None)
  Receive Date: 20140108
  Receipt Date: 20140108
  Transmission Date: 20141002
  Serious: Yes (Other)
  Sender: FDA-Public Use
  Company Number: M-13-012

PATIENT
  Age: 53 Year
  Sex: Female

DRUGS (10)
  1. HYDROMORPHONE HYDROCHLORIDE [Suspect]
     Indication: PAIN
     Dosage: 1 TABLET 4XDAY ORALLY
     Route: 048
  2. XANAX [Concomitant]
  3. ALBUTEROL [Concomitant]
  4. ATROVENT [Concomitant]
  5. SINGULAIR [Concomitant]
  6. SYMBICORT [Concomitant]
  7. CLARITIN [Concomitant]
  8. PHENERGAN [Concomitant]
  9. PROAIR [Concomitant]
  10. MIRALAX [Concomitant]

REACTIONS (1)
  - Urine analysis abnormal [None]
